FAERS Safety Report 13044429 (Version 1)
Quarter: 2016Q4

REPORT INFORMATION
  Report Type: Spontaneous
  Country: US (occurrence: US)
  Receive Date: 20161220
  Receipt Date: 20161220
  Transmission Date: 20170207
  Serious: Yes (Other)
  Sender: FDA-Public Use
  Company Number: US-ROCHE-1039871

PATIENT
  Age: 52 Year
  Sex: Female
  Weight: 69.01 kg

DRUGS (1)
  1. ZELBORAF [Suspect]
     Active Substance: VEMURAFENIB
     Indication: MALIGNANT MELANOMA
     Dosage: 720 IN MORNING (AM) AND 480 AT NIGHT (PM)
     Route: 048
     Dates: start: 20120201

REACTIONS (7)
  - Nausea [Unknown]
  - Erythema [Unknown]
  - Fatigue [Unknown]
  - Mass [Unknown]
  - Rash erythematous [Unknown]
  - Pruritus [Unknown]
  - Squamous cell carcinoma [Recovering/Resolving]

NARRATIVE: CASE EVENT DATE: 20120302
